FAERS Safety Report 4479794-5 (Version None)
Quarter: 2004Q4

REPORT INFORMATION
  Report Type: 
  Country: None (occurrence: None)
  Receive Date: 20041015
  Receipt Date: 20041011
  Transmission Date: 20050328
  Serious: Yes (Death, Life-Threatening)
  Sender: FDA-Public Use
  Company Number: 200410500BFR

PATIENT
  Age: 43 Year
  Sex: Female

DRUGS (8)
  1. CIPROFLOXACIN HCL [Suspect]
     Indication: SEPTIC SHOCK
     Dosage: 400 MG, TOTAL DAILY, INTRAVENOUS
     Route: 042
     Dates: start: 20040114, end: 20040117
  2. FLUCONAZOLE [Suspect]
     Indication: FUNGAL INFECTION
     Dosage: ORAL
     Route: 048
     Dates: start: 20040105, end: 20040114
  3. AXEPIM (CEFEPIME HYDROCHLORIDE) [Suspect]
     Indication: SEPTIC SHOCK
     Dosage: INTRAVENOUS
     Route: 042
     Dates: start: 20040114, end: 20040118
  4. HYPNOVEL [Concomitant]
  5. SUFENTA [Concomitant]
  6. NORADRENALINE [Concomitant]
  7. NIMBEX [Concomitant]
  8. HYDROCORTISONE [Concomitant]

REACTIONS (3)
  - MULTI-ORGAN FAILURE [None]
  - SEPTIC SHOCK [None]
  - TOXIC EPIDERMAL NECROLYSIS [None]
